FAERS Safety Report 11505328 (Version 1)
Quarter: 2015Q3

REPORT INFORMATION
  Report Type: Spontaneous
  Country: US (occurrence: US)
  Receive Date: 20150915
  Receipt Date: 20150915
  Transmission Date: 20151125
  Serious: No
  Sender: FDA-Public Use
  Company Number: US-ROCHE-780938

PATIENT
  Sex: Female

DRUGS (2)
  1. PEGASYS [Suspect]
     Active Substance: PEGINTERFERON ALFA-2A
     Indication: HEPATITIS C
     Route: 065
  2. COPEGUS [Suspect]
     Active Substance: RIBAVIRIN
     Indication: HEPATITIS C
     Dosage: DIVIDED DOSES
     Route: 065

REACTIONS (12)
  - Injection site bruising [Unknown]
  - Pruritus [Unknown]
  - Arthralgia [Unknown]
  - Malaise [Unknown]
  - Muscular weakness [Unknown]
  - Loss of consciousness [Recovering/Resolving]
  - Fatigue [Not Recovered/Not Resolved]
  - Hordeolum [Unknown]
  - Feeling abnormal [Unknown]
  - Insomnia [Unknown]
  - Myalgia [Unknown]
  - Rash pruritic [Unknown]
